FAERS Safety Report 13767764 (Version 1)
Quarter: 2017Q3

REPORT INFORMATION
  Report Type: Report from Study
  Country: CA (occurrence: CA)
  Receive Date: 20170719
  Receipt Date: 20170719
  Transmission Date: 20171127
  Serious: Yes (Other)
  Sender: FDA-Public Use
  Company Number: CA-CONCORDIA PHARMACEUTICALS INC.-GSH201707-004187

PATIENT
  Age: 67 Year
  Sex: Female

DRUGS (16)
  1. METHOTREXATE. [Suspect]
     Active Substance: METHOTREXATE
     Indication: RHEUMATOID ARTHRITIS
     Route: 065
  2. FUROSEMIDE. [Concomitant]
     Active Substance: FUROSEMIDE
  3. ZINGIBER OFFICINALE [Concomitant]
     Active Substance: GINGER
  4. ERGOCALCIFEROL. [Concomitant]
     Active Substance: ERGOCALCIFEROL
  5. VALSARTAN. [Concomitant]
     Active Substance: VALSARTAN
  6. PLAQUENIL [Suspect]
     Active Substance: HYDROXYCHLOROQUINE SULFATE
     Indication: RHEUMATOID ARTHRITIS
     Route: 048
  7. POTASSIUM CHLORIDE. [Concomitant]
     Active Substance: POTASSIUM CHLORIDE
  8. ORENCIA [Suspect]
     Active Substance: ABATACEPT
     Indication: PRODUCT USED FOR UNKNOWN INDICATION
     Route: 065
  9. CALCIUM [Concomitant]
     Active Substance: CALCIUM
  10. ESTROGEL [Concomitant]
     Active Substance: ESTRADIOL
  11. ACTEMRA [Suspect]
     Active Substance: TOCILIZUMAB
     Indication: PRODUCT USED FOR UNKNOWN INDICATION
     Route: 065
  12. CIMZIA [Suspect]
     Active Substance: CERTOLIZUMAB PEGOL
     Indication: PRODUCT USED FOR UNKNOWN INDICATION
     Route: 058
  13. DORZOLAMIDE HYDROCHLORIDE TIMOLOL MALEATE [Concomitant]
  14. MORPHINE [Concomitant]
     Active Substance: MORPHINE
  15. ENBREL [Suspect]
     Active Substance: ETANERCEPT
     Indication: RHEUMATOID ARTHRITIS
     Route: 065
  16. XALATAN [Concomitant]
     Active Substance: LATANOPROST

REACTIONS (9)
  - Synovitis [Unknown]
  - Bronchitis [Unknown]
  - Drug intolerance [Unknown]
  - Colitis microscopic [Unknown]
  - Unevaluable event [Unknown]
  - Glaucoma [Unknown]
  - C-reactive protein increased [Unknown]
  - Diverticulitis [Unknown]
  - Drug ineffective [Unknown]
